FAERS Safety Report 9344573 (Version 1)
Quarter: 2013Q2

REPORT INFORMATION
  Report Type: Spontaneous
  Country: US (occurrence: US)
  Receive Date: 20130612
  Receipt Date: 20130612
  Transmission Date: 20140414
  Serious: No
  Sender: FDA-Public Use
  Company Number: US-PFIZER INC-2013177320

PATIENT
  Sex: Male

DRUGS (2)
  1. EFFEXOR XR [Suspect]
     Dosage: 150 MG, UNK
  2. RAPAFLO [Concomitant]
     Dosage: UNK

REACTIONS (3)
  - Hypertension [Unknown]
  - Prostatic disorder [Unknown]
  - Erectile dysfunction [Unknown]
